FAERS Safety Report 8890844 (Version 2)
Quarter: 2013Q2

REPORT INFORMATION
  Report Type: Report from Study
  Country: FR (occurrence: FR)
  Receive Date: 20121107
  Receipt Date: 20130502
  Transmission Date: 20140414
  Serious: Yes (Hospitalization)
  Sender: FDA-Public Use
  Company Number: FR-ROCHE-1149636

PATIENT
  Age: 65 Year
  Sex: Female
  Weight: 47 kg

DRUGS (3)
  1. BEVACIZUMAB [Suspect]
     Indication: OVARIAN CANCER
     Dosage: DATE OF LAST DOSE: 27/AUG/2012
     Route: 042
     Dates: start: 20120827, end: 20121018
  2. CARBOPLATIN [Suspect]
     Indication: OVARIAN CANCER
     Dosage: AUC 5
     Route: 042
     Dates: start: 20120827, end: 20121018
  3. PACLITAXEL [Suspect]
     Indication: OVARIAN CANCER
     Route: 042
     Dates: start: 20120927

REACTIONS (2)
  - Infected lymphocele [Not Recovered/Not Resolved]
  - Inflammation [Not Recovered/Not Resolved]
